FAERS Safety Report 7085795-3 (Version None)
Quarter: 2010Q4

REPORT INFORMATION
  Report Type: 
  Country: None (occurrence: None)
  Receive Date: 20101105
  Receipt Date: 20101021
  Transmission Date: 20110411
  Serious: Yes (Hospitalization, Disabling)
  Sender: FDA-Public Use
  Company Number: GB-ROCHE-735866

PATIENT
  Age: 58 Year
  Sex: Male
  Weight: 111.5 kg

DRUGS (12)
  1. XELODA [Suspect]
     Indication: COLON CANCER
     Route: 048
     Dates: start: 20100510, end: 20100516
  2. ASPIRIN [Concomitant]
     Route: 048
  3. ATENOLOL [Concomitant]
     Route: 048
  4. FERROUS SULFATE TAB [Concomitant]
     Route: 048
  5. GLYCERYL TRINITRATE [Concomitant]
     Route: 060
  6. LANSOPRAZOLE [Concomitant]
     Route: 048
  7. LEVEMIR [Concomitant]
     Route: 058
  8. METFORMIN HCL [Concomitant]
     Route: 048
  9. NOVORAPID [Concomitant]
     Route: 058
  10. RAMIPRIL [Concomitant]
  11. SIMVASTATIN [Concomitant]
     Route: 048
  12. TRAMADOL HCL [Concomitant]
     Route: 048

REACTIONS (6)
  - DIARRHOEA [None]
  - HAEMORRHAGE [None]
  - MOUTH ULCERATION [None]
  - ODYNOPHAGIA [None]
  - PALMAR-PLANTAR ERYTHRODYSAESTHESIA SYNDROME [None]
  - SKIN EXFOLIATION [None]
